FAERS Safety Report 4294937-4 (Version None)
Quarter: 2004Q1

REPORT INFORMATION
  Report Type: 
  Country: None (occurrence: None)
  Receive Date: 20040216
  Receipt Date: 20030306
  Transmission Date: 20041129
  Serious: No
  Sender: FDA-Public Use
  Company Number: US-GLAXOSMITHKLINE-A0399300A

PATIENT
  Sex: Female

DRUGS (7)
  1. LAMICTAL [Suspect]
     Dosage: 25MG TWICE PER DAY
     Route: 048
     Dates: start: 20030201
  2. SEROQUEL [Concomitant]
     Dosage: 300MG AT NIGHT
  3. CLONAZEPAM [Concomitant]
     Dosage: 2MG AT NIGHT
  4. EFFEXOR [Concomitant]
     Dosage: 187.5MG IN THE MORNING
  5. WELLBUTRIN [Concomitant]
     Dosage: 150MG PER DAY
  6. VASOTEC [Concomitant]
  7. HYDROCHLOROTHIAZIDE [Concomitant]
     Dosage: 25MG IN THE MORNING

REACTIONS (2)
  - IMPAIRED HEALING [None]
  - MILIA [None]
